FAERS Safety Report 4273876-9 (Version None)
Quarter: 2004Q1

REPORT INFORMATION
  Report Type: 
  Country: None (occurrence: None)
  Receive Date: 20040115
  Receipt Date: 20000614
  Transmission Date: 20041129
  Serious: Yes (Hospitalization)
  Sender: FDA-Public Use
  Company Number: 7053

PATIENT
  Age: 25 Year
  Sex: Female

DRUGS (1)
  1. METHOTREXATE [Suspect]
     Indication: GESTATIONAL TROPHOBLASTIC TUMOUR
     Dosage: 50 MG ALT_DAYS, IM
     Route: 030

REACTIONS (2)
  - PLEURISY [None]
  - PLEURITIC PAIN [None]
